FAERS Safety Report 5852946-5 (Version None)
Quarter: 2008Q3

REPORT INFORMATION
  Report Type: 
  Country: None (occurrence: None)
  Receive Date: 20080821
  Receipt Date: 20080811
  Transmission Date: 20090109
  Serious: Yes (Hospitalization)
  Sender: FDA-Public Use
  Company Number: US-JNJFOC-20080803540

PATIENT
  Sex: Female

DRUGS (7)
  1. INFLIXIMAB [Suspect]
     Route: 042
  2. INFLIXIMAB [Suspect]
     Indication: CROHN'S DISEASE
     Route: 042
  3. HUMIRA [Concomitant]
  4. PREDNISONE TAB [Concomitant]
  5. MUTIVITAMIN [Concomitant]
  6. PREVACID [Concomitant]
  7. ROWASA ENEMAS [Concomitant]

REACTIONS (1)
  - GASTROENTERITIS [None]
